FAERS Safety Report 17498415 (Version 3)
Quarter: 2021Q3

REPORT INFORMATION
  Report Type: Spontaneous
  Country: JP (occurrence: JP)
  Receive Date: 20200304
  Receipt Date: 20210811
  Transmission Date: 20211014
  Serious: Yes (Other)
  Sender: FDA-Public Use
  Company Number: JP-BAUSCH-BL-2020-005387

PATIENT
  Age: 27 Year
  Sex: Female

DRUGS (18)
  1. MINOCYCLINE [Suspect]
     Active Substance: MINOCYCLINE HYDROCHLORIDE
     Dosage: CONTINUED OVER 6 WEEKS AFTER MRSA BACTEREMIA CLEARED, FOUR WEEKS PARENTERALLY AND TWO WEEKS ORALLY
     Route: 065
  2. DAPTOMYCIN. [Suspect]
     Active Substance: DAPTOMYCIN
     Dosage: CONTINUED OVER 6 WEEKS AFTER MRSA BACTEREMIA CLEARED, FOUR WEEKS PARENTERALLY AND TWO WEEKS ORALLY
     Route: 065
  3. METHYLPREDNISOLONE. [Concomitant]
     Active Substance: METHYLPREDNISOLONE
     Indication: HAEMOPHAGOCYTIC LYMPHOHISTIOCYTOSIS
  4. MINOCYCLINE [Suspect]
     Active Substance: MINOCYCLINE HYDROCHLORIDE
     Indication: STAPHYLOCOCCAL INFECTION
     Dosage: ON DAY 62 TO 68
     Route: 065
  5. DOXYCYCLINE. [Suspect]
     Active Substance: DOXYCYCLINE
     Dosage: CONTINUED OVER 6 WEEKS AFTER MRSA BACTEREMIA CLEARED, FOUR WEEKS PARENTERALLY AND TWO WEEKS ORALLY
     Route: 065
  6. TEICOPLANIN [Suspect]
     Active Substance: TEICOPLANIN
     Indication: STAPHYLOCOCCAL INFECTION
     Dosage: WITH THERAPEUTIC DRUG MONITORING FOR TARGET TROUGH 15 TO 20 MG/ML, ON DAY 42 TO 54
     Route: 065
  7. METHYLPREDNISOLONE. [Concomitant]
     Active Substance: METHYLPREDNISOLONE
     Dosage: SUBSEQUENTLY TAPERED AND EVENTUALLY DISCONTINUED AFTER 22 DAYS
  8. VANCOMYCIN [Suspect]
     Active Substance: VANCOMYCIN
     Indication: STAPHYLOCOCCAL INFECTION
     Dosage: WITH THERAPEUTIC DRUG MONITORING FOR TARGET TROUGH 15 TO 20 MG/ML, ON DAY 14 TO 23
     Route: 065
  9. DOXYCYCLINE. [Suspect]
     Active Substance: DOXYCYCLINE
     Indication: STAPHYLOCOCCAL INFECTION
     Dosage: ON DAY 34 TO 36
     Route: 065
  10. VANCOMYCIN [Suspect]
     Active Substance: VANCOMYCIN
     Dosage: CONTINUED OVER 6 WEEKS AFTER MRSA BACTEREMIA CLEARED, FOUR WEEKS PARENTERALLY AND TWO WEEKS ORALLY
     Route: 065
  11. DAPTOMYCIN. [Suspect]
     Active Substance: DAPTOMYCIN
     Indication: STAPHYLOCOCCAL INFECTION
     Dosage: 10 MG/KG EVERY 24 HOURS, ON DAY 22 TO 32
     Route: 065
  12. SULFAMETHOXAZOLE AND TRIMETHOPRIM [Suspect]
     Active Substance: SULFAMETHOXAZOLE\TRIMETHOPRIM
     Indication: STAPHYLOCOCCAL INFECTION
     Dosage: 2 TABLETS TWICE DAILY ON DAY 27 TO 32
     Route: 065
  13. TEICOPLANIN [Suspect]
     Active Substance: TEICOPLANIN
     Dosage: CONTINUED OVER 6 WEEKS AFTER MRSA BACTEREMIA CLEARED, FOUR WEEKS PARENTERALLY AND TWO WEEKS ORALLY
     Route: 065
  14. SULFAMETHOXAZOLE AND TRIMETHOPRIM [Suspect]
     Active Substance: SULFAMETHOXAZOLE\TRIMETHOPRIM
     Dosage: CONTINUED OVER 6 WEEKS AFTER MRSA BACTEREMIA CLEARED, FOUR WEEKS PARENTERALLY AND TWO WEEKS ORALLY
     Route: 065
  15. PREDNISOLONE. [Concomitant]
     Active Substance: PREDNISOLONE
     Dosage: SUBSEQUENTLY TAPERED AND EVENTUALLY DISCONTINUED AFTER 22 DAYS
     Route: 065
  16. DOXYCYCLINE. [Suspect]
     Active Substance: DOXYCYCLINE
     Dosage: DAY 57 TO 61
     Route: 065
  17. VANCOMYCIN [Suspect]
     Active Substance: VANCOMYCIN
     Dosage: WITH THERAPEUTIC DRUG MONITORING FOR TARGET TROUGH 15 TO 20 MG/ML, ON DAY 33 TO 44
     Route: 065
  18. PREDNISOLONE. [Concomitant]
     Active Substance: PREDNISOLONE
     Indication: HAEMOPHAGOCYTIC LYMPHOHISTIOCYTOSIS
     Route: 065

REACTIONS (4)
  - Skin lesion [Unknown]
  - Nausea [Unknown]
  - Pyrexia [Unknown]
  - Pancytopenia [Unknown]
